FAERS Safety Report 9030182 (Version 1)
Quarter: 2013Q1

REPORT INFORMATION
  Report Type: Spontaneous
  Country: US (occurrence: US)
  Receive Date: 20130125
  Receipt Date: 20130125
  Transmission Date: 20140127
  Serious: No
  Sender: FDA-Public Use
  Company Number: US-PFIZER INC-2013032354

PATIENT
  Age: 77 Year
  Sex: Male
  Weight: 99 kg

DRUGS (5)
  1. ZOLOFT [Suspect]
     Indication: DEPRESSION
     Dosage: UNK, DAILY
  2. ZOLOFT [Suspect]
     Dosage: UNK, DAILY
     Dates: start: 201212, end: 20130114
  3. TOPROL XL [Concomitant]
     Indication: HYPERTENSION
     Dosage: UNK, DAILY
  4. TEMAZEPAM [Concomitant]
     Indication: SLEEP DISORDER
     Dosage: 15 MG, DAILY
  5. LIPITOR [Concomitant]
     Indication: BLOOD CHOLESTEROL ABNORMAL
     Dosage: UNK, DAILY

REACTIONS (1)
  - Irritability [Not Recovered/Not Resolved]
